FAERS Safety Report 15271527 (Version 1)
Quarter: 2018Q3

REPORT INFORMATION
  Report Type: Spontaneous
  Country: US (occurrence: US)
  Receive Date: 20180813
  Receipt Date: 20180813
  Transmission Date: 20181010
  Serious: Yes (Hospitalization)
  Sender: FDA-Public Use
  Company Number: US-SA-2018SA209470

PATIENT
  Age: 49 Year
  Sex: Female
  Weight: 110.3 kg

DRUGS (1)
  1. TOUJEO [Suspect]
     Active Substance: INSULIN GLARGINE
     Dosage: 82 U, QD
     Dates: start: 20180705, end: 20180725

REACTIONS (3)
  - Dizziness [Recovered/Resolved]
  - Clostridium difficile colitis [Recovered/Resolved]
  - Syncope [Recovered/Resolved]

NARRATIVE: CASE EVENT DATE: 20180725
